FAERS Safety Report 7577192-9 (Version None)
Quarter: 2011Q2

REPORT INFORMATION
  Report Type: 
  Country: None (occurrence: None)
  Receive Date: 20110628
  Receipt Date: 20110615
  Transmission Date: 20111010
  Serious: Yes (Other)
  Sender: FDA-Public Use
  Company Number: JP-NOVOPROD-328618

PATIENT
  Age: 74 Year
  Sex: Female

DRUGS (2)
  1. LANTUS [Concomitant]
     Dosage: UNK
     Route: 058
     Dates: start: 20110401, end: 20110401
  2. NOVORAPID CHU FLEXPEN [Suspect]
     Indication: TYPE 2 DIABETES MELLITUS
     Dosage: UNK
     Route: 058
     Dates: start: 20110401, end: 20110401

REACTIONS (2)
  - EOSINOPHIL COUNT INCREASED [None]
  - HEPATIC FUNCTION ABNORMAL [None]
